FAERS Safety Report 6222982-8 (Version None)
Quarter: 2009Q2

REPORT INFORMATION
  Report Type: 
  Country: None (occurrence: None)
  Receive Date: 20090611
  Receipt Date: 20090603
  Transmission Date: 20091009
  Serious: Yes (Hospitalization)
  Sender: FDA-Public Use
  Company Number: ID-JNJFOC-20090602168

PATIENT
  Age: 28 Year
  Sex: Female

DRUGS (9)
  1. REMICADE [Suspect]
     Route: 042
  2. REMICADE [Suspect]
     Route: 042
  3. REMICADE [Suspect]
     Route: 042
  4. REMICADE [Suspect]
     Route: 042
  5. REMICADE [Suspect]
     Indication: ARTHRITIS
     Route: 042
  6. METHOTREXATE [Concomitant]
     Indication: ARTHRITIS
     Route: 048
  7. WARFARIN SODIUM [Concomitant]
     Indication: ANTICOAGULANT THERAPY
     Route: 048
  8. ASPILETS [Concomitant]
     Indication: ANTIPLATELET THERAPY
     Route: 048
  9. FOLIC ACID [Concomitant]
     Indication: ADJUVANT THERAPY
     Route: 048

REACTIONS (1)
  - PULMONARY TUBERCULOSIS [None]
